FAERS Safety Report 9903546 (Version 1)
Quarter: 2014Q1

REPORT INFORMATION
  Report Type: Spontaneous
  Country: CA (occurrence: CA)
  Receive Date: 20140217
  Receipt Date: 20140217
  Transmission Date: 20141002
  Serious: Yes (Other)
  Sender: FDA-Public Use
  Company Number: CA-GILEAD-2014-0094529

PATIENT
  Age: 69 Year
  Sex: Female
  Weight: 109.1 kg

DRUGS (6)
  1. AMBRISENTAN [Suspect]
     Indication: PULMONARY ARTERIAL HYPERTENSION
     Dosage: 5MG PER DAY
     Route: 048
     Dates: start: 20091231
  2. AMIODARONE [Concomitant]
  3. SPIRIVA [Concomitant]
  4. WARFARIN [Concomitant]
  5. WATER PILL [Concomitant]
  6. OXYGEN [Concomitant]
     Dosage: 5L CONTINUOUS

REACTIONS (2)
  - Lower respiratory tract infection [Not Recovered/Not Resolved]
  - Malaise [Not Recovered/Not Resolved]
